FAERS Safety Report 7528009-X (Version None)
Quarter: 2011Q2

REPORT INFORMATION
  Report Type: 
  Country: None (occurrence: None)
  Receive Date: 20110607
  Receipt Date: 20110602
  Transmission Date: 20111010
  Serious: Yes (Death, Hospitalization)
  Sender: FDA-Public Use
  Company Number: US-DX529-2011DX000027

PATIENT
  Age: 28 Year
  Sex: Female

DRUGS (1)
  1. KALBITOR [Suspect]
     Indication: HEREDITARY ANGIOEDEMA
     Route: 065
     Dates: start: 20110322, end: 20110322

REACTIONS (4)
  - SEPTIC EMBOLUS [None]
  - ANAEMIA [None]
  - ACUTE ENDOCARDITIS [None]
  - DEVICE RELATED SEPSIS [None]
